FAERS Safety Report 8666822 (Version 3)
Quarter: 2013Q1

REPORT INFORMATION
  Report Type: Spontaneous
  Country: US (occurrence: US)
  Receive Date: 20120716
  Receipt Date: 20130116
  Transmission Date: 20140127
  Serious: Yes (Other)
  Sender: FDA-Public Use
  Company Number: US-ASTRAZENECA-2012SE47564

PATIENT
  Age: 51 Year
  Sex: Male

DRUGS (2)
  1. CRESTOR [Suspect]
     Route: 048
  2. METFORMIN [Concomitant]

REACTIONS (6)
  - Hypertension [Unknown]
  - Blood glucose increased [Unknown]
  - Blood pressure inadequately controlled [Unknown]
  - Chest pain [Unknown]
  - Vision blurred [Unknown]
  - Intentional drug misuse [Unknown]
